FAERS Safety Report 19205739 (Version 1)
Quarter: 2021Q2

REPORT INFORMATION
  Report Type: Spontaneous
  Country: US (occurrence: US)
  Receive Date: 20210503
  Receipt Date: 20210503
  Transmission Date: 20210717
  Serious: No
  Sender: FDA-Public Use
  Company Number: US-FARMAPROD-202102-0184

PATIENT
  Sex: Female

DRUGS (15)
  1. PANTOPRAZOLE SODIUM. [Concomitant]
     Active Substance: PANTOPRAZOLE SODIUM
     Dosage: DELAYED RELEASE TABLET
  2. VITAL TEARS [Concomitant]
  3. OXERVATE [Suspect]
     Active Substance: CENEGERMIN-BKBJ
     Indication: NEUROTROPHIC KERATOPATHY
     Route: 047
     Dates: start: 20210118
  4. ALENDRONATE SODIUM. [Concomitant]
     Active Substance: ALENDRONATE SODIUM
  5. METFORMIN [Concomitant]
     Active Substance: METFORMIN HYDROCHLORIDE
     Dosage: EXTENDED RELEASE GASTRIC
  6. OXERVATE [Suspect]
     Active Substance: CENEGERMIN-BKBJ
     Indication: DRY EYE
  7. OXERVATE [Suspect]
     Active Substance: CENEGERMIN-BKBJ
     Indication: CORNEAL DISORDER
  8. ALPHAGAN P [Concomitant]
     Active Substance: BRIMONIDINE TARTRATE
  9. ARTIFICIAL TEARS [Concomitant]
     Active Substance: GLYCERIN\HYPROMELLOSES\POLYETHYLENE GLYCOL 400
  10. ATORVASTATIN CALCIUM. [Concomitant]
     Active Substance: ATORVASTATIN CALCIUM
  11. PILOCARPINE HYDROCHLORIDE. [Concomitant]
     Active Substance: PILOCARPINE HYDROCHLORIDE
  12. GLIPIZIDE. [Concomitant]
     Active Substance: GLIPIZIDE
  13. IRON [Concomitant]
     Active Substance: IRON
     Dosage: 159 (45) MG EXTENDED RELEASE TABLET
  14. FISH OIL [Concomitant]
     Active Substance: FISH OIL
     Dosage: 100?150 MG
  15. BENADRYL [Concomitant]
     Active Substance: DIPHENHYDRAMINE HYDROCHLORIDE

REACTIONS (2)
  - Eye pain [Unknown]
  - Eye swelling [Unknown]
